FAERS Safety Report 19276159 (Version 1)
Quarter: 2021Q2

REPORT INFORMATION
  Report Type: Spontaneous
  Country: FR (occurrence: FR)
  Receive Date: 20210519
  Receipt Date: 20210519
  Transmission Date: 20210717
  Serious: Yes (Hospitalization, Other)
  Sender: FDA-Public Use
  Company Number: FR-BAYER-2021-138827

PATIENT
  Age: 39 Year
  Sex: Female

DRUGS (1)
  1. MIRENA [Suspect]
     Active Substance: LEVONORGESTREL
     Dosage: 20 ?G PER DAY, CONTINUOUSLY
     Route: 015

REACTIONS (7)
  - Device use issue [None]
  - Uterine enlargement [None]
  - Ovarian cyst [None]
  - Meningioma [None]
  - Seizure [None]
  - Aphasia [None]
  - Adenomyosis [None]

NARRATIVE: CASE EVENT DATE: 20051003
